FAERS Safety Report 7275721-6 (Version None)
Quarter: 2011Q1

REPORT INFORMATION
  Report Type: 
  Country: None (occurrence: None)
  Receive Date: 20110202
  Receipt Date: 20110202
  Transmission Date: 20110831
  Serious: No
  Sender: FDA-Public Use
  Company Number: None

PATIENT
  Age: 36 Year
  Sex: Female
  Weight: 55.7924 kg

DRUGS (1)
  1. MIRENA [Suspect]
     Indication: CONTRACEPTION
     Dates: start: 20080801, end: 20090201

REACTIONS (4)
  - IRRITABLE BOWEL SYNDROME [None]
  - WEIGHT DECREASED [None]
  - DEPRESSION [None]
  - PARAESTHESIA [None]
